FAERS Safety Report 16025317 (Version 6)
Quarter: 2022Q1

REPORT INFORMATION
  Report Type: Spontaneous
  Country: US (occurrence: None)
  Receive Date: 20190301
  Receipt Date: 20220323
  Transmission Date: 20220424
  Serious: Yes (Other)
  Sender: FDA-Public Use
  Company Number: 2018SF48304

PATIENT
  Age: 916 Month
  Sex: Female

DRUGS (60)
  1. NEXIUM [Suspect]
     Active Substance: ESOMEPRAZOLE MAGNESIUM
     Route: 048
  2. NEXIUM 24HR [Suspect]
     Active Substance: ESOMEPRAZOLE MAGNESIUM
     Route: 048
  3. PRILOSEC [Suspect]
     Active Substance: OMEPRAZOLE MAGNESIUM
     Indication: Gastrooesophageal reflux disease
     Route: 048
     Dates: start: 201302, end: 201810
  4. PRILOSEC [Suspect]
     Active Substance: OMEPRAZOLE MAGNESIUM
     Indication: Gastrooesophageal reflux disease
     Dosage: GENERIC
     Route: 065
     Dates: start: 20161121
  5. PRILOSEC [Suspect]
     Active Substance: OMEPRAZOLE MAGNESIUM
     Indication: Gastrooesophageal reflux disease
     Route: 048
  6. PRILOSEC [Suspect]
     Active Substance: OMEPRAZOLE MAGNESIUM
     Indication: Gastrooesophageal reflux disease
     Route: 048
  7. PRILOSEC [Suspect]
     Active Substance: OMEPRAZOLE MAGNESIUM
     Indication: Gastrooesophageal reflux disease
     Route: 048
     Dates: start: 20130204, end: 20131029
  8. PRILOSEC [Suspect]
     Active Substance: OMEPRAZOLE MAGNESIUM
     Indication: Gastrooesophageal reflux disease
     Dosage: GENERIC
     Route: 065
     Dates: start: 20130523, end: 20181029
  9. PRILOSEC [Suspect]
     Active Substance: OMEPRAZOLE MAGNESIUM
     Indication: Gastrooesophageal reflux disease
     Route: 048
     Dates: start: 19930101, end: 20181029
  10. PRILOSEC OTC [Suspect]
     Active Substance: OMEPRAZOLE MAGNESIUM
     Route: 048
     Dates: start: 201302, end: 201810
  11. PRILOSEC OTC [Suspect]
     Active Substance: OMEPRAZOLE MAGNESIUM
     Route: 048
  12. PRILOSEC OTC [Suspect]
     Active Substance: OMEPRAZOLE MAGNESIUM
     Route: 048
     Dates: start: 20030620, end: 20190801
  13. PROTONIX [Suspect]
     Active Substance: PANTOPRAZOLE SODIUM
     Route: 065
     Dates: start: 201302, end: 201810
  14. PREVACID [Suspect]
     Active Substance: LANSOPRAZOLE
     Route: 065
  15. PREVACID 24 HR [Suspect]
     Active Substance: LANSOPRAZOLE
     Route: 065
  16. BENICAR HCT [Concomitant]
     Active Substance: HYDROCHLOROTHIAZIDE\OLMESARTAN MEDOXOMIL
  17. STELARA [Concomitant]
     Active Substance: USTEKINUMAB
  18. GLIPIZIDE [Concomitant]
     Active Substance: GLIPIZIDE
  19. METFORMIN [Concomitant]
     Active Substance: METFORMIN HYDROCHLORIDE
     Indication: Type 2 diabetes mellitus
     Dates: start: 20161220
  20. TIZANIDINE [Concomitant]
     Active Substance: TIZANIDINE
  21. LEVOTHYROXINE [Concomitant]
     Active Substance: LEVOTHYROXINE
  22. FLUOXETINE/AMINO ACIDS NOS [Concomitant]
  23. OXYCODONE [Concomitant]
     Active Substance: OXYCODONE
  24. TRADJENTA [Concomitant]
     Active Substance: LINAGLIPTIN
  25. CLOBETASOL [Concomitant]
     Active Substance: CLOBETASOL
  26. AMLODIPINE [Concomitant]
     Active Substance: AMLODIPINE BESYLATE
     Indication: Hypertension
     Dates: start: 20161102
  27. HYDROMORPHONE [Concomitant]
     Active Substance: HYDROMORPHONE
  28. FUROSEMIDE [Concomitant]
     Active Substance: FUROSEMIDE
     Indication: Renal disorder
     Dates: start: 20160901
  29. ACETAMINOPHEN\HYDROCODONE BITARTRATE [Concomitant]
     Active Substance: ACETAMINOPHEN\HYDROCODONE BITARTRATE
  30. AZITHROMYCIN [Concomitant]
     Active Substance: AZITHROMYCIN
  31. LORAZEPAM [Concomitant]
     Active Substance: LORAZEPAM
     Indication: Seizure
     Dates: start: 20160810
  32. LIDOCAINE [Concomitant]
     Active Substance: LIDOCAINE
  33. KLOR-CON [Concomitant]
     Active Substance: POTASSIUM CHLORIDE
  34. ATORVASTATIN [Concomitant]
     Active Substance: ATORVASTATIN
  35. OLMESARTAN [Concomitant]
     Active Substance: OLMESARTAN
  36. BENICAR [Concomitant]
     Active Substance: OLMESARTAN MEDOXOMIL
  37. NORVASC [Concomitant]
     Active Substance: AMLODIPINE BESYLATE
  38. FLUOXETINE [Concomitant]
     Active Substance: FLUOXETINE HYDROCHLORIDE
  39. VITAMIN B12 [Concomitant]
     Active Substance: CYANOCOBALAMIN
  40. VITAMIN D3 [Concomitant]
     Active Substance: CHOLECALCIFEROL
  41. NITROGLYCERIN [Concomitant]
     Active Substance: NITROGLYCERIN
  42. ASPIRIN [Concomitant]
     Active Substance: ASPIRIN
  43. ZANTAC [Concomitant]
     Active Substance: RANITIDINE HYDROCHLORIDE
  44. PEPTO-BISMOL [Concomitant]
     Active Substance: BISMUTH SUBSALICYLATE
  45. NYSTATIN [Concomitant]
     Active Substance: NYSTATIN
  46. NYSTATIN [Concomitant]
     Active Substance: NYSTATIN
  47. ZOLPIDEM [Concomitant]
     Active Substance: ZOLPIDEM TARTRATE
  48. SIMVASTATIN [Concomitant]
     Active Substance: SIMVASTATIN
  49. CYMBALTA [Concomitant]
     Active Substance: DULOXETINE HYDROCHLORIDE
  50. CYCLOBENZAPRINE [Concomitant]
     Active Substance: CYCLOBENZAPRINE
  51. CRESTOR [Concomitant]
     Active Substance: ROSUVASTATIN CALCIUM
  52. AMLODIPINE BESYLATE [Concomitant]
     Active Substance: AMLODIPINE BESYLATE
  53. JANUVIA [Concomitant]
     Active Substance: SITAGLIPTIN PHOSPHATE
  54. METOPROLOL TARTRATE [Concomitant]
     Active Substance: METOPROLOL TARTRATE
  55. OLMESARTAN MEDOXOMIL [Concomitant]
     Active Substance: OLMESARTAN MEDOXOMIL
  56. ALLOPURINOL [Concomitant]
     Active Substance: ALLOPURINOL
  57. LIPITOR [Concomitant]
     Active Substance: ATORVASTATIN CALCIUM
  58. COLACE [Concomitant]
     Active Substance: DOCUSATE SODIUM
  59. PROZAC [Concomitant]
     Active Substance: FLUOXETINE HYDROCHLORIDE
  60. COUMADIN [Concomitant]
     Active Substance: WARFARIN SODIUM

REACTIONS (3)
  - Chronic kidney disease [Not Recovered/Not Resolved]
  - Acute kidney injury [Unknown]
  - Renal injury [Unknown]

NARRATIVE: CASE EVENT DATE: 20180601
